FAERS Safety Report 23685070 (Version 1)
Quarter: 2024Q1

REPORT INFORMATION
  Report Type: Spontaneous
  Country: IN (occurrence: IN)
  Receive Date: 20240329
  Receipt Date: 20240329
  Transmission Date: 20240410
  Serious: Yes (Death, Life-Threatening, Hospitalization, Other)
  Sender: FDA-Public Use
  Company Number: None

PATIENT
  Age: 30 Year
  Sex: Female

DRUGS (3)
  1. MYCOPHENOLATE MOFETIL [Suspect]
     Active Substance: MYCOPHENOLATE MOFETIL
     Indication: Systemic lupus erythematosus
     Dosage: UNK
     Route: 065
  2. PREDNISOLONE [Suspect]
     Active Substance: PREDNISOLONE
     Indication: Systemic lupus erythematosus
     Dosage: 1 MG/KG/DAY, UNK
     Route: 065
  3. PREDNISOLONE [Suspect]
     Active Substance: PREDNISOLONE
     Dosage: UNK, TAPERED DOSE
     Route: 065

REACTIONS (17)
  - Hyponatraemia [Unknown]
  - Depressed level of consciousness [Unknown]
  - Nuchal rigidity [Unknown]
  - Hyperreflexia [Unknown]
  - Proteinuria [Unknown]
  - Meningism [Unknown]
  - Mycobacterium chelonae infection [Fatal]
  - Meningitis [Not Recovered/Not Resolved]
  - Arthritis [Unknown]
  - Somnolence [Unknown]
  - Pyrexia [Unknown]
  - Chills [Unknown]
  - Headache [Unknown]
  - Joint swelling [Unknown]
  - Arthralgia [Unknown]
  - Tachycardia [Unknown]
  - Off label use [Unknown]
